FAERS Safety Report 9677307 (Version 2)
Quarter: 2013Q4

REPORT INFORMATION
  Report Type: Spontaneous
  Country: US (occurrence: US)
  Receive Date: 20131108
  Receipt Date: 20131231
  Transmission Date: 20140711
  Serious: No
  Sender: FDA-Public Use
  Company Number: US-PFIZER INC-2013319279

PATIENT
  Age: 49 Year
  Sex: Female
  Weight: 52.15 kg

DRUGS (2)
  1. LYRICA [Suspect]
     Indication: FIBROMYALGIA
     Dosage: 100 MG, 2X/DAY
     Dates: start: 201001, end: 201310
  2. LYRICA [Suspect]
     Indication: NERVE INJURY

REACTIONS (1)
  - Feeling abnormal [Unknown]
